FAERS Safety Report 8394881 (Version 2)
Quarter: 2012Q4

REPORT INFORMATION
  Report Type: 
  Country: GB (occurrence: GB)
  Receive Date: 20120208
  Receipt Date: 20120930
  Transmission Date: 20130627
  Serious: Yes (Other)
  Sender: FDA-Public Use
  Company Number: GB-ELI_LILLY_AND_COMPANY-GB201201008830

PATIENT
  Age: 35 Year
  Sex: Female

DRUGS (15)
  1. DULOXETINE HYDROCHLORIDE [Suspect]
     Dosage: 60 mg, qd
     Route: 048
  2. DULOXETINE HYDROCHLORIDE [Suspect]
     Dosage: 30 mg, UNK
     Route: 048
     Dates: start: 2011
  3. CAMELLIA SINENSIS [Concomitant]
  4. CO-CODAMOL [Concomitant]
  5. DIANETTE [Concomitant]
  6. FOLIC ACID [Concomitant]
  7. MAGNESIUM [Concomitant]
  8. NATRASLEEP [Concomitant]
  9. POTASSIUM [Concomitant]
  10. KELP [Concomitant]
  11. SENNA [Concomitant]
  12. SILYBUM MARIANUM [Concomitant]
  13. VITAMIN B12 [Concomitant]
  14. VITAMIN C [Concomitant]
  15. VITAMINS [Concomitant]

REACTIONS (7)
  - Motion sickness [Recovering/Resolving]
  - Photophobia [Unknown]
  - Drug withdrawal syndrome [Not Recovered/Not Resolved]
  - Nausea [Unknown]
  - Vomiting [Unknown]
  - Eye pain [Recovering/Resolving]
  - Headache [Recovering/Resolving]
